FAERS Safety Report 7077611-0 (Version None)
Quarter: 2010Q4

REPORT INFORMATION
  Report Type: 
  Country: None (occurrence: None)
  Receive Date: 20101021
  Receipt Date: 20101014
  Transmission Date: 20110411
  Serious: Yes (Other)
  Sender: FDA-Public Use
  Company Number: 019974

PATIENT
  Age: 46 Year
  Sex: Female

DRUGS (1)
  1. VIMPAT [Suspect]
     Indication: OFF LABEL USE
     Dosage: (150 MG BID ORAL) ; (DOSE REDUCED 50MG EVERY DAY UNTILL THE DISCONTINUATION, ORAL)
     Route: 048
     Dates: start: 20101004

REACTIONS (7)
  - ATRIAL FIBRILLATION [None]
  - ATRIOVENTRICULAR BLOCK SECOND DEGREE [None]
  - CARDIAC ARREST [None]
  - MALAISE [None]
  - MENTAL DISORDER [None]
  - NERVOUSNESS [None]
  - OFF LABEL USE [None]
